FAERS Safety Report 5267529-8 (Version None)
Quarter: 2007Q1

REPORT INFORMATION
  Report Type: 
  Country: None (occurrence: None)
  Receive Date: 20061213
  Receipt Date: 20030808
  Transmission Date: 20070707
  Serious: No
  Sender: FDA-Public Use
  Company Number: 2003UW10130

PATIENT
  Sex: Female

DRUGS (2)
  1. TAMOXIFEN CITRATE [Suspect]
     Dates: start: 19941101, end: 19991101
  2. EVISTA [Concomitant]

REACTIONS (1)
  - ENDOMETRIAL CANCER [None]
